FAERS Safety Report 9505806 (Version 1)
Quarter: 2013Q1

REPORT INFORMATION
  Report Type: Spontaneous
  Country: US (occurrence: None)
  Receive Date: 20130225
  Receipt Date: 20130225
  Transmission Date: 20140127
  Serious: No
  Sender: FDA-Public Use
  Company Number: 367529

PATIENT
  Age: 53 Year
  Sex: Male

DRUGS (2)
  1. VICTOZA (LIRAGLUTIDE) SOLUTION FOR INJECTION, 6MG/ML [Suspect]
     Indication: GLUCOSE TOLERANCE IMPAIRED
     Dosage: 0.6QD. SUBCUTANEOUS
     Route: 058
  2. METFORMIN (METFORMIN) [Suspect]

REACTIONS (1)
  - Diarrhoea [None]
